FAERS Safety Report 10165214 (Version 1)
Quarter: 2014Q2

REPORT INFORMATION
  Report Type: Spontaneous
  Country: US (occurrence: US)
  Receive Date: 20140510
  Receipt Date: 20140510
  Transmission Date: 20141212
  Serious: No
  Sender: FDA-Public Use
  Company Number: US-BRISTOL-MYERS SQUIBB COMPANY-19779461

PATIENT
  Age: 68 Year
  Sex: Female
  Weight: 79.36 kg

DRUGS (11)
  1. BYDUREON [Suspect]
     Indication: DIABETES MELLITUS
     Route: 058
     Dates: start: 201308
  2. NEXIUM [Concomitant]
     Indication: ULCER
     Dosage: INTRPD:25OCT2013
     Route: 048
     Dates: start: 201308
  3. LISINOPRIL [Concomitant]
     Indication: BLOOD PRESSURE
     Route: 048
  4. AMITRIPTYLINE [Concomitant]
     Indication: NEUROPATHY PERIPHERAL
     Route: 048
  5. KLOR-CON [Concomitant]
     Route: 048
     Dates: start: 2010
  6. PHENERGAN [Concomitant]
     Indication: MALAISE
     Route: 048
     Dates: start: 2010
  7. SUCRALFATE [Concomitant]
     Indication: ULCER
     Route: 048
     Dates: start: 2010
  8. OXYGEN [Concomitant]
     Indication: CHRONIC OBSTRUCTIVE PULMONARY DISEASE
     Route: 055
  9. METFORMIN [Concomitant]
     Indication: DIABETES MELLITUS
     Route: 048
     Dates: start: 2004
  10. DIGOXIN [Concomitant]
     Indication: CARDIAC DISORDER
     Route: 048
     Dates: start: 2012
  11. GLIPIZIDE [Concomitant]
     Indication: DIABETES MELLITUS
     Route: 048
     Dates: start: 2004

REACTIONS (2)
  - Depression [Unknown]
  - Weight decreased [Unknown]
